FAERS Safety Report 16822821 (Version 2)
Quarter: 2019Q3

REPORT INFORMATION
  Report Type: Report from Study
  Country: DE (occurrence: DE)
  Receive Date: 20190918
  Receipt Date: 20190927
  Transmission Date: 20191005
  Serious: Yes (Congenital Anomaly)
  Sender: FDA-Public Use
  Company Number: DE-PFIZER INC-2019399883

PATIENT

DRUGS (1)
  1. LEVETIRACETAM. [Suspect]
     Active Substance: LEVETIRACETAM
     Indication: EPILEPSY
     Dosage: 4000 MG, DAILY
     Route: 064
     Dates: end: 201111

REACTIONS (3)
  - Maternal exposure during pregnancy [Recovered/Resolved]
  - Urinary tract malformation [Unknown]
  - Urethral valves [Unknown]
